FAERS Safety Report 8760844 (Version 2)
Quarter: 2013Q4

REPORT INFORMATION
  Report Type: Spontaneous
  Country: US (occurrence: US)
  Receive Date: 20120830
  Receipt Date: 20131101
  Transmission Date: 20140711
  Serious: No
  Sender: FDA-Public Use
  Company Number: US-009507513-1208USA007793

PATIENT
  Sex: Male

DRUGS (1)
  1. REMERON [Suspect]
     Route: 048

REACTIONS (4)
  - Muscle spasms [Unknown]
  - Insomnia [Unknown]
  - Abdominal discomfort [Unknown]
  - Wrong technique in drug usage process [Unknown]
